FAERS Safety Report 10052572 (Version 1)
Quarter: 2014Q2

REPORT INFORMATION
  Report Type: Spontaneous
  Country: US (occurrence: US)
  Receive Date: 20140402
  Receipt Date: 20140402
  Transmission Date: 20141212
  Serious: No
  Sender: FDA-Public Use
  Company Number: US-BAYER-2014-049871

PATIENT
  Age: 50 Year
  Sex: Female

DRUGS (2)
  1. ALEVE TABLET [Suspect]
     Dosage: UNK
     Route: 048
  2. ALEVE TABLET [Suspect]
     Dosage: 3 DF, ONCE
     Route: 048
     Dates: start: 20140401, end: 20140401

REACTIONS (2)
  - Extra dose administered [None]
  - Intentional product misuse [None]
